FAERS Safety Report 8798948 (Version 1)
Quarter: 2012Q4

REPORT INFORMATION
  Report Type: 
  Country: US (occurrence: US)
  Receive Date: 20120920
  Receipt Date: 20120920
  Transmission Date: 20130627
  Serious: Yes (Other)
  Sender: FDA-Public Use
  Company Number: US-FRI-1000038474

PATIENT
  Age: 23 Year
  Sex: Female

DRUGS (6)
  1. VIIBRYD [Suspect]
     Indication: MAJOR DEPRESSION
     Dosage: 10 mg
     Route: 048
     Dates: start: 2012, end: 2012
  2. VIIBRYD [Suspect]
     Dosage: 20 mg
     Route: 048
     Dates: start: 2012, end: 2012
  3. VIIBRYD [Suspect]
     Dosage: 40 mg
     Route: 048
     Dates: start: 2012
  4. TRAMADOL [Suspect]
     Indication: MIGRAINE
     Dates: start: 201209, end: 201209
  5. ONE A DAY WOMEN^S [Concomitant]
  6. KLONOPIN [Concomitant]
     Indication: ANXIETY

REACTIONS (4)
  - Suicidal ideation [Recovering/Resolving]
  - Mania [Recovering/Resolving]
  - Migraine [Unknown]
  - Drug interaction [Recovering/Resolving]
